FAERS Safety Report 7989449-8 (Version None)
Quarter: 2011Q4

REPORT INFORMATION
  Report Type: 
  Country: None (occurrence: None)
  Receive Date: 20111219
  Receipt Date: 20111208
  Transmission Date: 20120403
  Serious: Yes (Other)
  Sender: FDA-Public Use
  Company Number: GB-AMGEN-GBRCT2011059543

PATIENT
  Age: 17 Year
  Sex: Female
  Weight: 64.8 kg

DRUGS (4)
  1. ONDANSETRON [Concomitant]
     Dosage: 1 MG, 2X/DAY
     Route: 048
     Dates: start: 20111001
  2. IBUPROFEN [Concomitant]
     Dosage: 400 MG, 3X/DAY
     Route: 048
     Dates: start: 20071001
  3. FOLIC ACID [Concomitant]
     Dosage: 5 MG, WEEKLY
     Route: 048
     Dates: start: 20071001
  4. ETANERCEPT [Suspect]
     Indication: JUVENILE ARTHRITIS
     Dosage: 50 MG, QWK
     Route: 058
     Dates: start: 20071009

REACTIONS (1)
  - JUVENILE ARTHRITIS [None]
